FAERS Safety Report 4958480-9 (Version None)
Quarter: 2006Q1

REPORT INFORMATION
  Report Type: 
  Country: None (occurrence: None)
  Receive Date: 20060201
  Receipt Date: 20051031
  Transmission Date: 20060701
  Serious: No
  Sender: FDA-Public Use
  Company Number: 2005PV003931

PATIENT
  Age: 52 Year
  Sex: Female
  Weight: 85.7298 kg

DRUGS (4)
  1. BYETTA [Suspect]
     Indication: DIABETES MELLITUS NON-INSULIN-DEPENDENT
     Dosage: 5 MCG;BID;SC
     Route: 058
     Dates: start: 20051010
  2. GLUCOPHAGE [Concomitant]
  3. ACTOS [Concomitant]
  4. CELEBREX [Concomitant]

REACTIONS (4)
  - DECREASED APPETITE [None]
  - HYPERHIDROSIS [None]
  - NAUSEA [None]
  - WEIGHT DECREASED [None]
